FAERS Safety Report 11038304 (Version 1)
Quarter: 2015Q2

REPORT INFORMATION
  Report Type: Spontaneous
  Country: US (occurrence: None)
  Receive Date: 20150415
  Receipt Date: 20150415
  Transmission Date: 20150821
  Serious: Yes (Other)
  Sender: FDA-Public Use
  Company Number: None

PATIENT
  Age: 32 Year
  Sex: Female
  Weight: 86.18 kg

DRUGS (2)
  1. HUMIRA [Suspect]
     Active Substance: ADALIMUMAB
     Indication: CROHN^S DISEASE
     Dosage: SUBCUTANEOUS ?40MG?INJECTABLE?QOW?CROHN^S AND ANKYLOSING SPONDYLITIS ?ROUGHLY 19 MONTHS PPT )~10/20/13 TO
     Route: 058
     Dates: start: 201310
  2. HUMIRA [Suspect]
     Active Substance: ADALIMUMAB
     Indication: ANKYLOSING SPONDYLITIS
     Dosage: SUBCUTANEOUS ?40MG?INJECTABLE?QOW?CROHN^S AND ANKYLOSING SPONDYLITIS ?ROUGHLY 19 MONTHS PPT )~10/20/13 TO
     Route: 058
     Dates: start: 201310

REACTIONS (1)
  - Psoriasis [None]

NARRATIVE: CASE EVENT DATE: 20150401
